FAERS Safety Report 8207921-2 (Version None)
Quarter: 2012Q1

REPORT INFORMATION
  Report Type: 
  Country: None (occurrence: None)
  Receive Date: 20120314
  Receipt Date: 20120305
  Transmission Date: 20120608
  Serious: Yes (Other)
  Sender: FDA-Public Use
  Company Number: US-JNJFOC-20120303624

PATIENT
  Sex: Female
  Weight: 70 kg

DRUGS (20)
  1. ENBREL [Concomitant]
     Route: 065
  2. CALCIUM [Concomitant]
     Indication: SUPPLEMENTATION THERAPY
     Route: 065
  3. DAIVOBET [Concomitant]
     Indication: PSORIASIS
     Route: 065
  4. ZYRTEC [Suspect]
     Route: 065
  5. BENADRYL [Suspect]
     Indication: URTICARIA
     Route: 065
     Dates: start: 20120113, end: 20120113
  6. VITAMIN [Concomitant]
     Indication: SUPPLEMENTATION THERAPY
     Route: 065
  7. CURCUMA LONGA RHIZOME [Concomitant]
     Indication: SUPPLEMENTATION THERAPY
     Route: 065
  8. DILTIAZEM HCL [Concomitant]
     Indication: HYPERTENSION
     Route: 065
  9. BUDESONIDE [Concomitant]
     Indication: MULTIPLE ALLERGIES
     Route: 065
  10. DOXYCYCLINE [Concomitant]
     Indication: PRODUCT USED FOR UNKNOWN INDICATION
     Route: 065
  11. BENADRYL [Suspect]
     Route: 065
  12. EPINEPHRINE [Suspect]
     Indication: URTICARIA
     Route: 065
     Dates: start: 20120113, end: 20120113
  13. ROSUVASTATIN CALCIUM [Concomitant]
     Indication: BLOOD CHOLESTEROL INCREASED
     Route: 065
  14. TAMOXIFEN CITRATE [Concomitant]
     Indication: BREAST CANCER
     Route: 065
  15. ACETYLSALICYLIC ACID SRT [Concomitant]
     Indication: PRODUCT USED FOR UNKNOWN INDICATION
     Route: 065
  16. OMEGA VITAMIN [Concomitant]
     Indication: SUPPLEMENTATION THERAPY
     Route: 065
  17. LOSARTAN POTASSIUM [Concomitant]
     Indication: HYPERTENSION
     Route: 065
  18. ZYRTEC [Suspect]
     Indication: MULTIPLE ALLERGIES
     Route: 065
     Dates: start: 20120110
  19. HUMIRA [Suspect]
     Indication: PSORIATIC ARTHROPATHY
     Route: 058
     Dates: start: 20080101, end: 20120110
  20. BIOTIN [Concomitant]
     Indication: SUPPLEMENTATION THERAPY
     Route: 065

REACTIONS (8)
  - DYSPNOEA [None]
  - DRY THROAT [None]
  - ERYTHEMA [None]
  - ANGIOEDEMA [None]
  - HYPOAESTHESIA [None]
  - DYSPHAGIA [None]
  - URTICARIA [None]
  - WRONG DRUG ADMINISTERED [None]
